FAERS Safety Report 5302695-7 (Version None)
Quarter: 2007Q2

REPORT INFORMATION
  Report Type: 
  Country: None (occurrence: None)
  Receive Date: 20070419
  Receipt Date: 20070409
  Transmission Date: 20071010
  Serious: Yes (Other)
  Sender: FDA-Public Use
  Company Number: US-PFIZER INC-2007015187

PATIENT
  Sex: Male
  Weight: 66.2 kg

DRUGS (5)
  1. SUTENT [Suspect]
     Indication: RENAL CELL CARCINOMA STAGE UNSPECIFIED
     Route: 048
  2. ALL OTHER THERAPEUTIC PRODUCTS [Concomitant]
  3. ANTIEMETICS AND ANTINAUSEANTS [Concomitant]
  4. APPETITE STIMULANTS [Concomitant]
  5. SYNTHROID [Concomitant]

REACTIONS (6)
  - CONTUSION [None]
  - HAEMOGLOBIN DECREASED [None]
  - JOINT SWELLING [None]
  - OEDEMA PERIPHERAL [None]
  - PETECHIAE [None]
  - PLEURAL EFFUSION [None]
